FAERS Safety Report 25705460 (Version 1)
Quarter: 2025Q3

REPORT INFORMATION
  Report Type: Spontaneous
  Country: MX (occurrence: MX)
  Receive Date: 20250820
  Receipt Date: 20250820
  Transmission Date: 20251020
  Serious: Yes (Other)
  Sender: JOHNSON AND JOHNSON
  Company Number: MX-JNJFOC-20250817924

PATIENT
  Sex: Female

DRUGS (4)
  1. TREMFYA [Suspect]
     Active Substance: GUSELKUMAB
     Indication: Product used for unknown indication
     Route: 065
     Dates: start: 2024
  2. TREMFYA [Suspect]
     Active Substance: GUSELKUMAB
  3. TREMFYA [Suspect]
     Active Substance: GUSELKUMAB
  4. TREMFYA [Suspect]
     Active Substance: GUSELKUMAB

REACTIONS (1)
  - Breast cancer [Unknown]

NARRATIVE: CASE EVENT DATE: 20250601
